FAERS Safety Report 5179561-3 (Version None)
Quarter: 2006Q4

REPORT INFORMATION
  Report Type: 
  Country: None (occurrence: None)
  Receive Date: 20061219
  Receipt Date: 20061213
  Transmission Date: 20070319
  Serious: Yes (Other)
  Sender: FDA-Public Use
  Company Number: JP-BOEHRINGER INGELHEIM PHARMACEUTICALS, INC.-2006-BP-14650YA

PATIENT
  Age: 38 Year
  Sex: Male

DRUGS (13)
  1. HARNAL (TAMSULOSIN) ORODISPERSABLE CR [Suspect]
     Route: 048
  2. LODOPIN [Suspect]
     Indication: SCHIZOPHRENIA
     Route: 048
     Dates: end: 20060920
  3. LODOPIN [Suspect]
     Route: 048
     Dates: start: 20060921, end: 20060929
  4. AKINETON [Concomitant]
     Route: 048
  5. MAGMITT [Concomitant]
     Route: 048
  6. SENNOSIDE (SENNOSIDE A+B CALCIUM) [Concomitant]
     Route: 048
  7. ZYPREXA [Concomitant]
     Route: 048
  8. NITRAZEPAM [Concomitant]
     Route: 048
  9. VEGETAMIN A [Concomitant]
     Route: 048
  10. RISPERDAL [Concomitant]
  11. ROHYPNOL [Concomitant]
     Route: 048
  12. CETILO (RHUBARB SENNA COMBINED DRUG) [Concomitant]
     Route: 048
  13. GASMOTIN [Concomitant]
     Route: 048

REACTIONS (1)
  - CONVULSION [None]
